FAERS Safety Report 4446401-7 (Version None)
Quarter: 2004Q3

REPORT INFORMATION
  Report Type: 
  Country: None (occurrence: None)
  Receive Date: 20040902
  Receipt Date: 20040817
  Transmission Date: 20050211
  Serious: Yes (Hospitalization)
  Sender: FDA-Public Use
  Company Number: EWC040840311

PATIENT
  Age: 64 Year
  Weight: 65 kg

DRUGS (8)
  1. GEMCITABINE HYDROCHLORIDE IV (GEMCITABINE) [Suspect]
     Indication: LUNG NEOPLASM MALIGNANT
     Dosage: 1200 MG
     Dates: start: 20030121, end: 20040523
  2. NAVELBINE [Concomitant]
  3. TROPISETRON [Concomitant]
  4. DEXAMETHASONE [Concomitant]
  5. MEGESTROL [Concomitant]
  6. CODEINE [Concomitant]
  7. COFREL (BENPROPERINE PHOSPHATE) [Concomitant]
  8. THEOPHYLLINE [Concomitant]

REACTIONS (5)
  - ASPIRATION [None]
  - ASTHMA [None]
  - HEPATIC FUNCTION ABNORMAL [None]
  - NEUTROPENIA [None]
  - VOMITING [None]
